FAERS Safety Report 13484885 (Version 1)
Quarter: 2017Q2

REPORT INFORMATION
  Report Type: Spontaneous
  Country: US (occurrence: US)
  Receive Date: 20170426
  Receipt Date: 20170426
  Transmission Date: 20170830
  Serious: No
  Sender: FDA-Public Use
  Company Number: US-PFIZER INC-2017177468

PATIENT
  Age: 54 Year

DRUGS (1)
  1. SUTENT [Suspect]
     Active Substance: SUNITINIB MALATE
     Indication: RENAL CELL CARCINOMA
     Dosage: 50 MG, CYCLIC (ONCE DAILY WITH OR WITHOUT FOR 4 WEEKS OF A 6-WEEK. TAKE NONE THE LAST 2 WEEKS)
     Dates: start: 20170420

REACTIONS (1)
  - Malaise [Unknown]
